FAERS Safety Report 12621466 (Version 1)
Quarter: 2016Q3

REPORT INFORMATION
  Report Type: Spontaneous
  Country: US (occurrence: US)
  Receive Date: 20160804
  Receipt Date: 20160804
  Transmission Date: 20161109
  Serious: Yes (Other)
  Sender: FDA-Public Use
  Company Number: US-UNITED THERAPEUTICS-UNT-2016-012063

PATIENT
  Age: 46 Year
  Sex: Female
  Weight: 76.64 kg

DRUGS (2)
  1. LETAIRIS [Concomitant]
     Active Substance: AMBRISENTAN
     Indication: PRODUCT USED FOR UNKNOWN INDICATION
  2. TYVASO [Suspect]
     Active Substance: TREPROSTINIL
     Indication: PULMONARY HYPERTENSION
     Dosage: 72-108 ?G, QID
     Dates: start: 20141128

REACTIONS (4)
  - Product use issue [Unknown]
  - Oedema [Unknown]
  - Face oedema [Unknown]
  - Headache [Unknown]

NARRATIVE: CASE EVENT DATE: 201607
